FAERS Safety Report 4680879-9 (Version None)
Quarter: 2005Q2

REPORT INFORMATION
  Report Type: 
  Country: None (occurrence: None)
  Receive Date: 20050601
  Receipt Date: 20050601
  Transmission Date: 20051028
  Serious: Yes (Hospitalization)
  Sender: FDA-Public Use
  Company Number: None

PATIENT
  Age: 53 Year
  Sex: Female

DRUGS (1)
  1. DEFINITY [Suspect]
     Indication: DIAGNOSTIC PROCEDURE
     Dosage: ONE TIME IV ROUTE
     Route: 042
     Dates: start: 20050526

REACTIONS (3)
  - BACK PAIN [None]
  - CHEST PAIN [None]
  - POST PROCEDURAL COMPLICATION [None]
